FAERS Safety Report 6727824-X (Version None)
Quarter: 2010Q2

REPORT INFORMATION
  Report Type: 
  Country: None (occurrence: None)
  Receive Date: 20100512
  Receipt Date: 20100426
  Transmission Date: 20101027
  Serious: No
  Sender: FDA-Public Use
  Company Number: 2010040055

PATIENT
  Age: 56 Year
  Sex: Female

DRUGS (1)
  1. ONSOLIS [Suspect]
     Indication: ANALGESIC THERAPY
     Dosage: (200 MCG), BU
     Route: 002
     Dates: start: 20100426

REACTIONS (2)
  - DRUG INEFFECTIVE [None]
  - INAPPROPRIATE SCHEDULE OF DRUG ADMINISTRATION [None]
